FAERS Safety Report 10013580 (Version 3)
Quarter: 2014Q1

REPORT INFORMATION
  Report Type: Spontaneous
  Country: US (occurrence: US)
  Receive Date: 20140315
  Receipt Date: 20140320
  Transmission Date: 20141002
  Serious: Yes (Other)
  Sender: FDA-Public Use
  Company Number: US-ROCHE-1361943

PATIENT
  Age: 52 Year
  Sex: Female
  Weight: 74.46 kg

DRUGS (9)
  1. XOLAIR [Suspect]
     Indication: ASTHMA
     Route: 058
     Dates: start: 20120418
  2. XOLAIR [Suspect]
     Route: 065
     Dates: start: 201307, end: 20140305
  3. ADVAIR [Concomitant]
     Indication: ASTHMA
     Route: 065
     Dates: start: 201111
  4. SYNTHROID [Concomitant]
  5. ZYRTEC [Concomitant]
  6. SINGULAIR [Concomitant]
     Indication: ASTHMA
     Route: 048
     Dates: start: 201201
  7. CELEXA (UNITED STATES) [Concomitant]
  8. IMDUR [Concomitant]
  9. LIPITOR [Concomitant]

REACTIONS (9)
  - Anaphylactic reaction [Recovered/Resolved]
  - Adrenal insufficiency [Unknown]
  - Bronchitis [Unknown]
  - Sinusitis [Unknown]
  - Fatigue [Unknown]
  - Alveolitis allergic [Unknown]
  - Bronchitis chronic [Unknown]
  - Oropharyngeal pain [Unknown]
  - Throat irritation [Unknown]
